FAERS Safety Report 18443036 (Version 1)
Quarter: 2020Q4

REPORT INFORMATION
  Report Type: Spontaneous
  Country: US (occurrence: US)
  Receive Date: 20201029
  Receipt Date: 20201029
  Transmission Date: 20210114
  Serious: No
  Sender: FDA-Public Use
  Company Number: US-TAKEDA-2020TUS044152

PATIENT
  Sex: Male
  Weight: 75 kg

DRUGS (3)
  1. ALBUTEROL [SALBUTAMOL] [Concomitant]
     Active Substance: ALBUTEROL
     Indication: BRONCHIAL DISORDER
     Dosage: UNK
     Route: 065
  2. DEXILANT [Suspect]
     Active Substance: DEXLANSOPRAZOLE
     Indication: OESOPHAGITIS
     Dosage: 30 MILLIGRAM, QD
     Route: 065
  3. DEXILANT [Suspect]
     Active Substance: DEXLANSOPRAZOLE
     Dosage: UNK
     Route: 065

REACTIONS (3)
  - No adverse event [Unknown]
  - Incorrect product administration duration [Unknown]
  - Drug ineffective [Unknown]
